FAERS Safety Report 24138659 (Version 1)
Quarter: 2024Q3

REPORT INFORMATION
  Report Type: Report from Study
  Country: DE (occurrence: DE)
  Receive Date: 20240725
  Receipt Date: 20240725
  Transmission Date: 20241016
  Serious: Yes (Hospitalization)
  Sender: BIOGEN
  Company Number: DE-BIOGEN-2024BI01275136

PATIENT
  Age: 37 Year
  Sex: Male
  Weight: 64 kg

DRUGS (1)
  1. TECFIDERA [Suspect]
     Active Substance: DIMETHYL FUMARATE
     Indication: Multiple sclerosis
     Dosage: MAINTENANCE DOSE
     Route: 050
     Dates: start: 20231115

REACTIONS (1)
  - Multiple sclerosis relapse [Recovered/Resolved]

NARRATIVE: CASE EVENT DATE: 20240402
